FAERS Safety Report 22136449 (Version 1)
Quarter: 2023Q1

REPORT INFORMATION
  Report Type: Spontaneous
  Country: KW (occurrence: KW)
  Receive Date: 20230324
  Receipt Date: 20230324
  Transmission Date: 20230418
  Serious: Yes (Hospitalization)
  Sender: FDA-Public Use
  Company Number: KW-ELI_LILLY_AND_COMPANY-KW202303008845

PATIENT
  Age: 23 Year
  Sex: Female

DRUGS (2)
  1. EMGALITY [Suspect]
     Active Substance: GALCANEZUMAB-GNLM
     Indication: Migraine
     Dosage: 240 MG, SINGLE (120MG + 120MG LOADING DOSE)
     Route: 065
  2. EMGALITY [Suspect]
     Active Substance: GALCANEZUMAB-GNLM
     Dosage: 120 MG, UNKNOWN
     Route: 065

REACTIONS (2)
  - Migraine [Recovered/Resolved]
  - Migraine [Recovered/Resolved]
